FAERS Safety Report 12714548 (Version 1)
Quarter: 2016Q3

REPORT INFORMATION
  Report Type: Report from Study
  Country: US (occurrence: US)
  Receive Date: 20160905
  Receipt Date: 20160905
  Transmission Date: 20161109
  Serious: Yes (Other)
  Sender: FDA-Public Use
  Company Number: US-AMGEN-USASL2016115010

PATIENT
  Age: 67 Year
  Sex: Female

DRUGS (1)
  1. ENBREL [Suspect]
     Active Substance: ETANERCEPT
     Indication: RHEUMATOID ARTHRITIS
     Dosage: 50 MG, QWK
     Route: 065

REACTIONS (12)
  - Fall [Unknown]
  - Bleeding varicose vein [Unknown]
  - Myalgia [Unknown]
  - Injection site pain [Unknown]
  - Joint surgery [Unknown]
  - Neuropathy peripheral [Unknown]
  - Limb operation [Unknown]
  - Pruritus [Unknown]
  - Injection site pruritus [Unknown]
  - Varicose vein [Unknown]
  - Somnolence [Unknown]
  - Arthralgia [Not Recovered/Not Resolved]

NARRATIVE: CASE EVENT DATE: 2016
